FAERS Safety Report 13395484 (Version 2)
Quarter: 2017Q4

REPORT INFORMATION
  Report Type: Spontaneous
  Country: SG (occurrence: SG)
  Receive Date: 20170403
  Receipt Date: 20171102
  Transmission Date: 20180320
  Serious: Yes (Life-Threatening, Hospitalization, Other)
  Sender: FDA-Public Use
  Company Number: SG-SUN PHARMACEUTICAL INDUSTRIES LTD-2017R1-137171

PATIENT
  Age: 52 Year
  Sex: Male

DRUGS (2)
  1. NITRAZEPAM [Concomitant]
     Active Substance: NITRAZEPAM
     Indication: PRODUCT USED FOR UNKNOWN INDICATION
     Dosage: UNK
     Route: 065
  2. AMITRIPTYLINE [Suspect]
     Active Substance: AMITRIPTYLINE
     Indication: PRODUCT USED FOR UNKNOWN INDICATION
     Dosage: 20 TABLETS, APPROXIMATELY 500 MG IN TOTAL 8 MG/KG
     Route: 048

REACTIONS (13)
  - Ventricular fibrillation [Unknown]
  - Electrocardiogram abnormal [Unknown]
  - Aggression [Unknown]
  - Cardiac arrest [Unknown]
  - Pupil fixed [Unknown]
  - Suicide attempt [Unknown]
  - Electrocardiogram QT prolonged [Unknown]
  - Electrocardiogram QRS complex prolonged [Unknown]
  - Areflexia [Recovered/Resolved]
  - Mydriasis [Unknown]
  - Electrocardiogram QRS complex abnormal [Unknown]
  - Intentional overdose [Unknown]
  - Toxicity to various agents [Unknown]
